FAERS Safety Report 6404547-8 (Version None)
Quarter: 2009Q4

REPORT INFORMATION
  Report Type: 
  Country: None (occurrence: None)
  Receive Date: 20091016
  Receipt Date: 20091006
  Transmission Date: 20100525
  Serious: Yes (Hospitalization)
  Sender: FDA-Public Use
  Company Number: PHEH2009US13162

PATIENT
  Sex: Male
  Weight: 63.492 kg

DRUGS (8)
  1. ENABLEX [Suspect]
     Indication: MICTURITION URGENCY
     Dosage: UNK, UNK
     Route: 048
     Dates: start: 20090801, end: 20091005
  2. LUCENTIS [Suspect]
     Dosage: UNK, UNK
     Dates: start: 20090914
  3. AVODART [Concomitant]
     Indication: PROSTATOMEGALY
     Dosage: UNK, UNK
     Route: 065
  4. DIGOXIN [Concomitant]
     Dosage: UNK, UNK
     Route: 065
  5. DEXEDRINE ^MEDEVA^ [Concomitant]
     Dosage: UNK, UNK
     Route: 065
  6. VITAMIN D [Concomitant]
     Dosage: UNK, UNK
     Route: 065
  7. IRON [Concomitant]
     Dosage: UNK, UNK
     Route: 065
  8. ICAPS [Concomitant]
     Dosage: UNK, UNK
     Route: 065

REACTIONS (4)
  - BLOOD PRESSURE DECREASED [None]
  - DIZZINESS [None]
  - LOSS OF CONSCIOUSNESS [None]
  - ORTHOSTATIC HYPOTENSION [None]
